FAERS Safety Report 8486495-5 (Version None)
Quarter: 2012Q3

REPORT INFORMATION
  Report Type: 
  Country: None (occurrence: None)
  Receive Date: 20120703
  Receipt Date: 20120116
  Transmission Date: 20120928
  Serious: Yes (Death)
  Sender: FDA-Public Use
  Company Number: VN-BAXTER-2012BAX010275

PATIENT
  Sex: Male

DRUGS (1)
  1. DIANEAL [Suspect]
     Route: 033
     Dates: start: 20071112

REACTIONS (1)
  - HEPATIC NEOPLASM MALIGNANT [None]
